FAERS Safety Report 16727944 (Version 3)
Quarter: 2019Q4

REPORT INFORMATION
  Report Type: Spontaneous
  Country: US (occurrence: US)
  Receive Date: 20190822
  Receipt Date: 20191230
  Transmission Date: 20200122
  Serious: No
  Sender: FDA-Public Use
  Company Number: US-CELGENEUS-USA-20190804884

PATIENT
  Sex: Female
  Weight: 83.54 kg

DRUGS (3)
  1. REVLIMID [Suspect]
     Active Substance: LENALIDOMIDE
     Dosage: 10-5 MILLIGRAM
     Route: 048
     Dates: start: 201709
  2. REVLIMID [Suspect]
     Active Substance: LENALIDOMIDE
     Indication: PLASMA CELL MYELOMA
     Dosage: 25 MILLIGRAM
     Route: 048
     Dates: start: 201702
  3. REVLIMID [Suspect]
     Active Substance: LENALIDOMIDE
     Dosage: 15 MILLIGRAM
     Route: 048
     Dates: start: 20190618

REACTIONS (8)
  - Product dose omission [Unknown]
  - Pain in extremity [Unknown]
  - Eye infection [Unknown]
  - Feeling hot [Not Recovered/Not Resolved]
  - Pruritus [Unknown]
  - Dysphonia [Not Recovered/Not Resolved]
  - Blister [Unknown]
  - Rash macular [Unknown]

NARRATIVE: CASE EVENT DATE: 2019
